FAERS Safety Report 5714179-2 (Version None)
Quarter: 2008Q2

REPORT INFORMATION
  Report Type: 
  Country: None (occurrence: None)
  Receive Date: 20080423
  Receipt Date: 20070824
  Transmission Date: 20081010
  Serious: No
  Sender: FDA-Public Use
  Company Number: US-KINGPHARMUSA00001-K200701151

PATIENT

DRUGS (2)
  1. SKELAXIN [Suspect]
     Indication: MUSCLE DISORDER
     Dosage: UNK, Q8H
     Route: 048
  2. SEVERAL UNSPECIFIED CONCOMITANT MEDICATIONS [Concomitant]

REACTIONS (3)
  - CHOKING [None]
  - DYSPHAGIA [None]
  - PHARYNGOLARYNGEAL PAIN [None]
